FAERS Safety Report 14231932 (Version 1)
Quarter: 2017Q4

REPORT INFORMATION
  Report Type: Report from Study
  Country: US (occurrence: US)
  Receive Date: 20171128
  Receipt Date: 20171128
  Transmission Date: 20180321
  Serious: Yes (Hospitalization)
  Sender: FDA-Public Use
  Company Number: US-BAYER-2017-223212

PATIENT
  Age: 59 Year
  Sex: Female

DRUGS (3)
  1. OXYGEN. [Concomitant]
     Active Substance: OXYGEN
     Dosage: 3.5 L, UNK
  2. ADEMPAS [Suspect]
     Active Substance: RIOCIGUAT
     Indication: PULMONARY ARTERIAL HYPERTENSION
     Dosage: UNK
     Route: 048
  3. ADEMPAS [Suspect]
     Active Substance: RIOCIGUAT
     Indication: PULMONARY ARTERIAL HYPERTENSION
     Dosage: 1.0 MG, TID
     Route: 048
     Dates: start: 20171024

REACTIONS (17)
  - Sputum discoloured [None]
  - Hospitalisation [Recovered/Resolved]
  - Heart rate irregular [None]
  - Pulmonary pain [None]
  - Dizziness [None]
  - Dyspnoea [None]
  - Swelling face [None]
  - Hypotension [None]
  - Weight increased [None]
  - Oedema peripheral [None]
  - Nausea [None]
  - Energy increased [None]
  - Productive cough [None]
  - Gait inability [None]
  - Rales [None]
  - Dizziness [None]
  - Oxygen saturation decreased [None]

NARRATIVE: CASE EVENT DATE: 20170614
